FAERS Safety Report 8934985 (Version 2)
Quarter: 2012Q4

REPORT INFORMATION
  Report Type: 
  Country: KR (occurrence: KR)
  Receive Date: 20121129
  Receipt Date: 20121213
  Transmission Date: 20130627
  Serious: Yes (Hospitalization)
  Sender: FDA-Public Use
  Company Number: KR-BAXTER-2012BAX025044

PATIENT
  Age: 57 Year
  Sex: Male
  Weight: 63 kg

DRUGS (6)
  1. DIANEAL-N PD-2 1.5% [Suspect]
     Indication: END STAGE RENAL DISEASE (ESRD)
     Route: 033
     Dates: start: 20100210
  2. DIANEAL-N PD-2 1.5% [Suspect]
     Indication: CONTINUOUS CYCLING PERITONEAL DIALYSIS
  3. EXTRANEAL [Suspect]
     Indication: END STAGE RENAL DISEASE (ESRD)
     Route: 033
     Dates: start: 20100210
  4. EXTRANEAL [Suspect]
     Indication: CONTINUOUS CYCLING PERITONEAL DIALYSIS
  5. TEVETEN [Concomitant]
     Indication: HYPERTENSION
     Route: 048
  6. DILATREND [Concomitant]
     Indication: HYPERTENSION
     Route: 048

REACTIONS (3)
  - Bronchopneumonia [Recovered/Resolved]
  - Immunodeficiency [Unknown]
  - Mycoplasma test positive [None]
